FAERS Safety Report 17336247 (Version 1)
Quarter: 2020Q1

REPORT INFORMATION
  Report Type: Spontaneous
  Country: US (occurrence: US)
  Receive Date: 20200129
  Receipt Date: 20200129
  Transmission Date: 20200409
  Serious: No
  Sender: FDA-Public Use
  Company Number: US-AMGEN-USASP2020011184

PATIENT

DRUGS (1)
  1. PROLIA [Suspect]
     Active Substance: DENOSUMAB
     Indication: PRODUCT USED FOR UNKNOWN INDICATION
     Dosage: UNK
     Route: 065

REACTIONS (8)
  - Mouth swelling [Unknown]
  - Swelling face [Unknown]
  - Pharyngeal swelling [Unknown]
  - Injection site swelling [Unknown]
  - Headache [Unknown]
  - Pain [Unknown]
  - Injection site pain [Unknown]
  - Tooth disorder [Unknown]
